FAERS Safety Report 16286578 (Version 1)
Quarter: 2019Q2

REPORT INFORMATION
  Report Type: Spontaneous
  Country: US (occurrence: US)
  Receive Date: 20190507
  Receipt Date: 20190507
  Transmission Date: 20190711
  Serious: Yes (Disabling)
  Sender: FDA-Public Use
  Company Number: None

PATIENT
  Age: 57 Year
  Sex: Female
  Weight: 99 kg

DRUGS (8)
  1. CIPROFLOXACIN. [Suspect]
     Active Substance: CIPROFLOXACIN
     Indication: CYSTITIS
     Dates: start: 20161015, end: 20161016
  2. LOSARTAN. [Concomitant]
     Active Substance: LOSARTAN
  3. CYMBALTA [Concomitant]
     Active Substance: DULOXETINE HYDROCHLORIDE
  4. VOLTAREN [Concomitant]
     Active Substance: DICLOFENAC SODIUM
  5. XANAX [Concomitant]
     Active Substance: ALPRAZOLAM
  6. ALBUTEROL INHALER [Concomitant]
     Active Substance: ALBUTEROL
  7. GABAPENTIN. [Concomitant]
     Active Substance: GABAPENTIN
  8. ABILILFY [Concomitant]

REACTIONS (13)
  - Temperature intolerance [None]
  - Hypertension [None]
  - Depression [None]
  - Malaise [None]
  - Toxicity to various agents [None]
  - Fibromyalgia [None]
  - Insomnia [None]
  - Neuropathy peripheral [None]
  - Tooth disorder [None]
  - Fatigue [None]
  - Visual impairment [None]
  - Anxiety [None]
  - Tinnitus [None]

NARRATIVE: CASE EVENT DATE: 20161015
